FAERS Safety Report 5576571-9 (Version None)
Quarter: 2007Q4

REPORT INFORMATION
  Report Type: 
  Country: None (occurrence: None)
  Receive Date: 20071228
  Receipt Date: 20071204
  Transmission Date: 20080405
  Serious: No
  Sender: FDA-Public Use
  Company Number: A0686650A

PATIENT
  Age: 73 Year
  Sex: Female

DRUGS (7)
  1. FLOVENT [Suspect]
     Indication: CHRONIC OBSTRUCTIVE PULMONARY DISEASE
     Route: 055
     Dates: start: 19970101
  2. SEREVENT [Concomitant]
  3. ALBUTEROL [Concomitant]
  4. DIOVAN [Concomitant]
  5. LASIX [Concomitant]
  6. PREVACID [Concomitant]
  7. METOCLOPRAMIDE [Concomitant]

REACTIONS (2)
  - BACK PAIN [None]
  - PHARMACEUTICAL PRODUCT COMPLAINT [None]
